FAERS Safety Report 13187776 (Version 8)
Quarter: 2019Q3

REPORT INFORMATION
  Report Type: Spontaneous
  Country: US (occurrence: US)
  Receive Date: 20170206
  Receipt Date: 20190924
  Transmission Date: 20191004
  Serious: No
  Sender: FDA-Public Use
  Company Number: US-PFIZER INC-2017051239

PATIENT
  Age: 63 Year
  Sex: Female
  Weight: 54 kg

DRUGS (13)
  1. CELEBREX [Suspect]
     Active Substance: CELECOXIB
     Indication: ARTHRALGIA
  2. ASPRIN [Suspect]
     Active Substance: ASPIRIN
     Dosage: 600 MG, DAILY
  3. ASPRIN [Suspect]
     Active Substance: ASPIRIN
     Dosage: 500 MG, AS NEEDED
     Route: 048
  4. FLUTICASONE PROPIONATE. [Concomitant]
     Active Substance: FLUTICASONE PROPIONATE
     Dosage: UNK, 2X/DAY [(50MCG/ACT/1 SPRAY NASAL EACH NOSTRIL EVERY 12 HOURS)]
     Route: 045
     Dates: start: 20190425
  5. CELEBREX [Suspect]
     Active Substance: CELECOXIB
     Indication: MYALGIA
     Dosage: 200 MG, 1X/DAY
     Dates: start: 20160803
  6. CELEBREX [Suspect]
     Active Substance: CELECOXIB
     Indication: MUSCULOSKELETAL STIFFNESS
     Dosage: 200 MG, 1X/DAY
     Route: 048
     Dates: start: 20180507, end: 201905
  7. ASPRIN [Suspect]
     Active Substance: ASPIRIN
     Indication: PAIN
     Dosage: 3000 MG, DAILY
  8. QVAR REDIHALER [Concomitant]
     Active Substance: BECLOMETHASONE DIPROPIONATE
     Dosage: UNK, 2X/DAY [80MCG/ACT/2 (TWO) PUFF INHALATION TWO TIMES DAILY]
     Dates: start: 20181105
  9. OMEPRAZOLE. [Concomitant]
     Active Substance: OMEPRAZOLE
     Indication: GASTRIC DISORDER
     Dosage: 20 MG, 2X/DAY
     Route: 048
     Dates: start: 20181105
  10. CELEBREX [Suspect]
     Active Substance: CELECOXIB
     Indication: ARTHRITIS
     Dosage: 200 MG, DAILY
     Route: 048
     Dates: start: 20190710
  11. CELEBREX [Suspect]
     Active Substance: CELECOXIB
     Indication: OSTEOARTHRITIS
  12. PROAIR HFA [Concomitant]
     Active Substance: ALBUTEROL SULFATE
     Dosage: UNK, AS NEEDED (108 (90 BASE)MCG/ACT/2 (TWO) INHALATION FOUR TIMES DALLY)
     Route: 055
     Dates: start: 20190329
  13. TYLENOL EXTRA STRENGTH [Concomitant]
     Active Substance: ACETAMINOPHEN
     Dosage: 1-2 AS NEEDED
     Route: 048

REACTIONS (4)
  - Withdrawal syndrome [Not Recovered/Not Resolved]
  - Movement disorder [Unknown]
  - Pain [Not Recovered/Not Resolved]
  - Paraesthesia [Recovered/Resolved]

NARRATIVE: CASE EVENT DATE: 201701
